FAERS Safety Report 7408171-X (Version None)
Quarter: 2011Q2

REPORT INFORMATION
  Report Type: 
  Country: None (occurrence: None)
  Receive Date: 20110412
  Receipt Date: 20101206
  Transmission Date: 20111010
  Serious: Yes (Hospitalization, Other)
  Sender: FDA-Public Use
  Company Number: US-BAYER-201018409NA

PATIENT
  Age: 32 Year
  Sex: Female
  Weight: 65 kg

DRUGS (9)
  1. SYNTHROID [Concomitant]
     Dates: start: 19980101
  2. YASMIN [Suspect]
     Indication: PREMENSTRUAL SYNDROME
     Dosage: AS USED DOSE: UNK
     Route: 048
     Dates: start: 20070101, end: 20080615
  3. HYDROCODONE BITARTRATE AND ACETAMINOPHEN [Concomitant]
  4. OCELLA [Suspect]
     Indication: PRODUCT USED FOR UNKNOWN INDICATION
     Dosage: AS USED DOSE: UNK
     Route: 065
  5. ALPRAZOLAM [Concomitant]
  6. CENTRUM [Concomitant]
  7. LEVOTHYROXINE [Concomitant]
  8. CIPROFLOXACIN [Concomitant]
  9. YAZ [Suspect]
     Indication: PREMENSTRUAL SYNDROME
     Dosage: AS USED DOSE: UNK
     Route: 048
     Dates: start: 20070101, end: 20080615

REACTIONS (3)
  - DEEP VEIN THROMBOSIS [None]
  - PAIN [None]
  - PREMENSTRUAL SYNDROME [None]
